FAERS Safety Report 25758955 (Version 1)
Quarter: 2025Q3

REPORT INFORMATION
  Report Type: Spontaneous
  Country: CN (occurrence: CN)
  Receive Date: 20250904
  Receipt Date: 20250904
  Transmission Date: 20251021
  Serious: Yes (Hospitalization)
  Sender: AMGEN
  Company Number: CN-AMGEN-CHNSP2025173439

PATIENT
  Age: 79 Year
  Sex: Male
  Weight: 67 kg

DRUGS (5)
  1. XGEVA [Suspect]
     Active Substance: DENOSUMAB
     Indication: Metastases to bone
     Route: 065
     Dates: start: 202304, end: 2023
  2. GOSERELIN [Concomitant]
     Active Substance: GOSERELIN
     Indication: Metastases to bone
     Dates: start: 202304, end: 2023
  3. GOSERELIN [Concomitant]
     Active Substance: GOSERELIN
     Dates: start: 2023
  4. ENZALUTAMIDE [Concomitant]
     Active Substance: ENZALUTAMIDE
     Indication: Metastases to bone
     Dosage: 160 MILLIGRAM, QD
     Route: 048
     Dates: start: 202304
  5. ZOLEDRONIC ACID [Concomitant]
     Active Substance: ZOLEDRONIC ACID
     Indication: Metastases to bone
     Dates: start: 202304

REACTIONS (13)
  - Metastases to bone [Unknown]
  - Interstitial lung disease [Unknown]
  - Myelosuppression [Unknown]
  - Tendonitis [Unknown]
  - Pneumonia [Unknown]
  - Atrial fibrillation [Unknown]
  - Prostate cancer [Unknown]
  - Mesenteric artery aneurysm [Unknown]
  - Pulmonary mass [Unknown]
  - Haemangioma [Unknown]
  - Chronic obstructive pulmonary disease [Unknown]
  - Intervertebral disc protrusion [Unknown]
  - Inguinal hernia [Unknown]

NARRATIVE: CASE EVENT DATE: 20230101
